FAERS Safety Report 4732533-2 (Version None)
Quarter: 2005Q3

REPORT INFORMATION
  Report Type: 
  Country: None (occurrence: None)
  Receive Date: 20050803
  Receipt Date: 20050613
  Transmission Date: 20060218
  Serious: Yes (Death)
  Sender: FDA-Public Use
  Company Number: ZA-GLAXOSMITHKLINE-B0384877A

PATIENT
  Sex: Male

DRUGS (1)
  1. ZYBAN [Suspect]
     Dosage: 150MG TWICE PER DAY
     Route: 048
     Dates: start: 20050607, end: 20050612

REACTIONS (4)
  - CEREBRAL HAEMORRHAGE [None]
  - CEREBROVASCULAR ACCIDENT [None]
  - CONVULSION [None]
  - SUBARACHNOID HAEMORRHAGE [None]
